FAERS Safety Report 9212961 (Version 3)
Quarter: 2013Q2

REPORT INFORMATION
  Report Type: Report from Study
  Country: US (occurrence: US)
  Receive Date: 20130405
  Receipt Date: 20130417
  Transmission Date: 20140414
  Serious: Yes (Hospitalization)
  Sender: FDA-Public Use
  Company Number: US-JNJFOC-20130318669

PATIENT
  Age: 17 Year
  Sex: Male
  Weight: 61.9 kg

DRUGS (12)
  1. REMICADE [Suspect]
     Indication: INFLAMMATORY BOWEL DISEASE
     Route: 042
     Dates: start: 20090108
  2. PROBIOTICS [Concomitant]
     Route: 065
  3. AMITIZA [Concomitant]
     Route: 065
  4. XOLAIR [Concomitant]
     Route: 065
  5. SERTRALINE [Concomitant]
     Route: 065
  6. ZOFRAN [Concomitant]
     Route: 065
  7. LIDOCAINE [Concomitant]
     Route: 065
  8. CHOLECALCIFEROL [Concomitant]
     Route: 065
  9. NYSTATIN [Concomitant]
     Route: 065
  10. CYPROHEPTADINE [Concomitant]
     Route: 065
  11. COENZYME Q [Concomitant]
     Route: 065
  12. DOXEPIN [Concomitant]
     Route: 065

REACTIONS (1)
  - Colitis [Recovered/Resolved]
